FAERS Safety Report 13053304 (Version 1)
Quarter: 2016Q4

REPORT INFORMATION
  Report Type: Spontaneous
  Country: US (occurrence: US)
  Receive Date: 20161221
  Receipt Date: 20161221
  Transmission Date: 20170207
  Serious: Yes (Hospitalization)
  Sender: FDA-Public Use
  Company Number: None

PATIENT
  Age: 58 Year
  Sex: Male

DRUGS (16)
  1. BETHANECHOL [Concomitant]
     Active Substance: BETHANECHOL
  2. MULTI VITAMIN [Concomitant]
     Active Substance: VITAMINS
  3. NEXIUM [Concomitant]
     Active Substance: ESOMEPRAZOLE MAGNESIUM
  4. LORATADINE. [Concomitant]
     Active Substance: LORATADINE
  5. MAG OXIDE [Concomitant]
     Active Substance: MAGNESIUM OXIDE
  6. CARAFATE [Concomitant]
     Active Substance: SUCRALFATE
  7. GLEEVEC [Concomitant]
     Active Substance: IMATINIB MESYLATE
  8. RANITIDINE. [Concomitant]
     Active Substance: RANITIDINE
  9. ADVIL [Concomitant]
     Active Substance: IBUPROFEN
  10. ARICEPT [Concomitant]
     Active Substance: DONEPEZIL HYDROCHLORIDE
  11. ANDROGEL [Concomitant]
     Active Substance: TESTOSTERONE
  12. CIALIS [Concomitant]
     Active Substance: TADALAFIL
  13. PAXIL [Concomitant]
     Active Substance: PAROXETINE HYDROCHLORIDE
  14. CHLOROQUINE. [Concomitant]
     Active Substance: CHLOROQUINE
  15. IMATINIB 100MG [Suspect]
     Active Substance: IMATINIB
     Indication: NEOPLASM MALIGNANT
     Route: 048
     Dates: start: 20150817
  16. CHOLESTYRAM [Concomitant]
     Active Substance: CHOLESTYRAMINE

REACTIONS (2)
  - Drug dose omission [None]
  - Hospitalisation [None]

NARRATIVE: CASE EVENT DATE: 201612
